FAERS Safety Report 8001778 (Version 2)
Quarter: 2016Q3

REPORT INFORMATION
  Report Type: Report from Study
  Country: US (occurrence: US)
  Receive Date: 20110622
  Receipt Date: 20160929
  Transmission Date: 20161109
  Serious: Yes (Death, Other)
  Sender: FDA-Public Use
  Company Number: US-ROCHE-783400

PATIENT
  Age: 41 Year
  Sex: Male

DRUGS (7)
  1. BEVACIZUMAB [Suspect]
     Active Substance: BEVACIZUMAB
     Route: 042
     Dates: start: 20101220
  2. AVE5026 (LMWT HEPARIN) [Suspect]
     Active Substance: SEMULOPARIN SODIUM
     Indication: MALIGNANT NEOPLASM OF ISLETS OF LANGERHANS
     Route: 065
  3. BEVACIZUMAB [Suspect]
     Active Substance: BEVACIZUMAB
     Indication: MALIGNANT NEOPLASM OF ISLETS OF LANGERHANS
     Dosage: CYCLE (28 DAYS): OVER 30-90 MINUTES ON DAY 1 AND 15, LAST DOSE RECEIVED ON 20 DECEMBER 2010.
     Route: 042
     Dates: start: 20101020
  4. BEVACIZUMAB [Suspect]
     Active Substance: BEVACIZUMAB
     Route: 042
     Dates: start: 20101020
  5. BEVACIZUMAB [Suspect]
     Active Substance: BEVACIZUMAB
     Route: 042
     Dates: start: 20101122
  6. TEMSIROLIMUS [Suspect]
     Active Substance: TEMSIROLIMUS
     Route: 042
     Dates: start: 20101020, end: 20101025
  7. TEMSIROLIMUS [Suspect]
     Active Substance: TEMSIROLIMUS
     Indication: MALIGNANT NEOPLASM OF ISLETS OF LANGERHANS
     Dosage: CYCLE 28 DAYS ON 1, 8, 15, 22
     Route: 042
     Dates: start: 20101020

REACTIONS (3)
  - Sudden death [Fatal]
  - Hypoglycaemia [Unknown]
  - Blood bilirubin increased [Unknown]

NARRATIVE: CASE EVENT DATE: 20101230
